FAERS Safety Report 9104788 (Version 2)
Quarter: 2013Q1

REPORT INFORMATION
  Report Type: Report from Study
  Country: US (occurrence: US)
  Receive Date: 20130219
  Receipt Date: 20130228
  Transmission Date: 20140127
  Serious: Yes (Hospitalization)
  Sender: FDA-Public Use
  Company Number: US-ACTELION-A-NJ2013-79341

PATIENT
  Age: 61 Year
  Sex: Female

DRUGS (3)
  1. TRACLEER [Suspect]
     Indication: PULMONARY ARTERIAL HYPERTENSION
     Dosage: UNK
     Route: 048
     Dates: start: 20110824
  2. SILDENAFIL [Concomitant]
  3. COUMADIN [Concomitant]

REACTIONS (3)
  - Fall [Recovered/Resolved]
  - Asthenia [Recovered/Resolved]
  - Orthostatic hypotension [Recovered/Resolved]
